FAERS Safety Report 6720026-2 (Version None)
Quarter: 2010Q2

REPORT INFORMATION
  Report Type: 
  Country: None (occurrence: None)
  Receive Date: 20100506
  Receipt Date: 20100423
  Transmission Date: 20101027
  Serious: Yes (Life-Threatening, Other)
  Sender: FDA-Public Use
  Company Number: OMPQ-NO-1002S-0127

PATIENT
  Age: 75 Year
  Sex: Female

DRUGS (15)
  1. OMNIPAQUE 140 [Suspect]
     Indication: ANGINA PECTORIS
     Dosage: 70 ML, SINGLE DOSE, IV
     Route: 042
     Dates: start: 20100218, end: 20100218
  2. METOPROLOL TARTRATE [Suspect]
     Indication: PULSE ABNORMAL
     Dosage: 40 MG, SINGLE DOSE, P.O.
     Route: 048
     Dates: start: 20100218, end: 20100218
  3. GLYCERYL TRINITRATE (NITROGLYCERIN) [Concomitant]
  4. ASPIRIN [Concomitant]
  5. PLAVIX [Concomitant]
  6. CONIEL [Concomitant]
  7. CANDESARTAN CILEXETIL [Concomitant]
  8. PARIET [Concomitant]
  9. ITOROL [Concomitant]
  10. HALCION [Concomitant]
  11. SENNA ALEXANDRIA LEAF [Concomitant]
  12. SELBEX [Concomitant]
  13. HOKUNALIN [Concomitant]
  14. ALDACTONE [Concomitant]
  15. LASIX [Concomitant]

REACTIONS (4)
  - ASTHMA [None]
  - BLOOD PRESSURE INCREASED [None]
  - EMPHYSEMA [None]
  - RENAL FAILURE ACUTE [None]
